FAERS Safety Report 19369179 (Version 3)
Quarter: 2021Q4

REPORT INFORMATION
  Report Type: Report from Study
  Country: KR (occurrence: KR)
  Receive Date: 20210603
  Receipt Date: 20211107
  Transmission Date: 20220303
  Serious: Yes (Other)
  Sender: FDA-Public Use
  Company Number: KR-KYOWAKIRIN-2021AKK009355

PATIENT
  Age: 80 Year
  Sex: Male

DRUGS (21)
  1. FILGRASTIM [Suspect]
     Active Substance: FILGRASTIM
     Indication: Product used for unknown indication
     Dosage: UNK
     Route: 065
     Dates: start: 20100913, end: 20100913
  2. CISPLATIN [Concomitant]
     Active Substance: CISPLATIN
     Indication: Product used for unknown indication
     Dosage: 102 MG
     Dates: start: 20100705, end: 20100705
  3. CISPLATIN [Concomitant]
     Active Substance: CISPLATIN
     Dosage: 102 MG
     Dates: start: 20100726, end: 20100726
  4. CISPLATIN [Concomitant]
     Active Substance: CISPLATIN
     Dosage: 102 MG
     Dates: start: 20100816, end: 20100816
  5. CISPLATIN [Concomitant]
     Active Substance: CISPLATIN
     Dosage: 102 MG
     Dates: start: 20100906, end: 20100906
  6. PEMETREXED [Concomitant]
     Active Substance: PEMETREXED
     Indication: Product used for unknown indication
     Dosage: 850 MG
     Dates: start: 20100705, end: 20100705
  7. PEMETREXED [Concomitant]
     Active Substance: PEMETREXED
     Dosage: 850 MG
     Dates: start: 20100726, end: 20100726
  8. PEMETREXED [Concomitant]
     Active Substance: PEMETREXED
     Dosage: 850 MG
     Dates: start: 20100816, end: 20100816
  9. PEMETREXED [Concomitant]
     Active Substance: PEMETREXED
     Dosage: 850 MG
     Dates: start: 20100906, end: 20100906
  10. PEMETREXED [Concomitant]
     Active Substance: PEMETREXED
     Dosage: 855 MG
     Dates: start: 20100705, end: 20100705
  11. PEMETREXED [Concomitant]
     Active Substance: PEMETREXED
     Dosage: 855 MG
     Dates: start: 20100726, end: 20100726
  12. PEMETREXED [Concomitant]
     Active Substance: PEMETREXED
     Dosage: 855 MG
     Dates: start: 20100816, end: 20100816
  13. PEMETREXED [Concomitant]
     Active Substance: PEMETREXED
     Dosage: 855 MG
     Dates: start: 20100906, end: 20100906
  14. COBAMAMIDE [Concomitant]
     Active Substance: COBAMAMIDE
     Indication: Product used for unknown indication
     Dosage: 1000 UNK
     Dates: start: 20100705
  15. CYANOCOBALAMIN [Concomitant]
     Active Substance: CYANOCOBALAMIN
     Indication: Product used for unknown indication
     Dosage: 1000 UNK
     Dates: start: 20100816
  16. DEXAMETHASONE [Concomitant]
     Active Substance: DEXAMETHASONE
     Indication: Product used for unknown indication
     Dosage: 5.25 MG
     Dates: start: 20100705, end: 20100708
  17. DEXAMETHASONE [Concomitant]
     Active Substance: DEXAMETHASONE
     Dosage: 5.25 MG
     Dates: start: 20100726, end: 20100730
  18. DEXAMETHASONE [Concomitant]
     Active Substance: DEXAMETHASONE
     Dosage: 5.25 MG
     Dates: start: 20100816, end: 20100819
  19. DEXAMETHASONE [Concomitant]
     Active Substance: DEXAMETHASONE
     Dosage: 5.25 MG
     Dates: start: 20100906, end: 20100909
  20. FOLIC ACID [Concomitant]
     Active Substance: FOLIC ACID
     Indication: Product used for unknown indication
     Dosage: 1 MG
  21. FOLIC ACID [Concomitant]
     Active Substance: FOLIC ACID
     Dosage: 1 MG
     Dates: start: 20100705

REACTIONS (1)
  - Neutropenia [Recovered/Resolved]

NARRATIVE: CASE EVENT DATE: 20100913
